FAERS Safety Report 12295002 (Version 2)
Quarter: 2016Q2

REPORT INFORMATION
  Report Type: Report from Study
  Country: US (occurrence: US)
  Receive Date: 20160422
  Receipt Date: 20160429
  Transmission Date: 20160815
  Serious: Yes (Hospitalization, Other)
  Sender: FDA-Public Use
  Company Number: US-JNJFOC-20160415298

PATIENT
  Sex: Male
  Weight: 25.86 kg

DRUGS (8)
  1. REMICADE [Suspect]
     Active Substance: INFLIXIMAB
     Indication: CROHN^S DISEASE
     Dosage: ONCE EVERY 8 TO 10 WEEKS
     Route: 042
  2. REMICADE [Suspect]
     Active Substance: INFLIXIMAB
     Indication: CROHN^S DISEASE
     Route: 042
     Dates: end: 201409
  3. REMICADE [Suspect]
     Active Substance: INFLIXIMAB
     Indication: CROHN^S DISEASE
     Dosage: HE RECEIVED ONCE EVERY 8,10 OR 12 WEEKS
     Route: 042
     Dates: start: 2007
  4. REMICADE [Suspect]
     Active Substance: INFLIXIMAB
     Indication: CROHN^S DISEASE
     Dosage: HE RECEIVED ONCE EVERY 8,10 OR 12 WEEKS
     Route: 042
     Dates: start: 2008
  5. REMICADE [Suspect]
     Active Substance: INFLIXIMAB
     Indication: CROHN^S DISEASE
     Route: 042
  6. REMICADE [Suspect]
     Active Substance: INFLIXIMAB
     Indication: CROHN^S DISEASE
     Route: 042
     Dates: start: 201401, end: 201508
  7. REMICADE [Suspect]
     Active Substance: INFLIXIMAB
     Indication: CROHN^S DISEASE
     Dosage: HE RECEIVED ONCE EVERY 8,10 OR 12 WEEKS
     Route: 042
     Dates: start: 2006
  8. KEFLEX [Suspect]
     Active Substance: CEPHALEXIN
     Indication: WISDOM TEETH REMOVAL
     Dosage: INITIATED IN 2010 OR 2011
     Route: 065

REACTIONS (12)
  - Accident [Unknown]
  - Crohn^s disease [Recovered/Resolved]
  - Eczema [Recovered/Resolved]
  - Drug ineffective [Unknown]
  - Product use issue [Unknown]
  - Skin ulcer [Recovered/Resolved]
  - Clostridium difficile infection [Recovered/Resolved]
  - Herpes zoster [Recovered/Resolved]
  - Wisdom teeth removal [Unknown]
  - Off label use [Unknown]
  - Acne [Recovered/Resolved]
  - Blister [Recovered/Resolved]

NARRATIVE: CASE EVENT DATE: 2008
